FAERS Safety Report 19748822 (Version 1)
Quarter: 2021Q3

REPORT INFORMATION
  Report Type: Spontaneous
  Country: CN (occurrence: CN)
  Receive Date: 20210826
  Receipt Date: 20210826
  Transmission Date: 20211014
  Serious: Yes (Other)
  Sender: FDA-Public Use
  Company Number: CN-ABBVIE-21K-035-4046425-00

PATIENT
  Age: 65 Year
  Sex: Female
  Weight: 58.4 kg

DRUGS (5)
  1. VENETOCLAX. [Suspect]
     Active Substance: VENETOCLAX
     Indication: ACUTE MYELOID LEUKAEMIA
     Dosage: DAY 1
     Route: 048
     Dates: start: 20210721
  2. VENETOCLAX. [Suspect]
     Active Substance: VENETOCLAX
     Dosage: DAY 2
     Route: 048
     Dates: start: 20210722
  3. VENETOCLAX. [Suspect]
     Active Substance: VENETOCLAX
     Dosage: DAY 4
     Route: 048
     Dates: start: 20210724
  4. VENETOCLAX. [Suspect]
     Active Substance: VENETOCLAX
     Dosage: DAY 3
     Route: 048
     Dates: start: 20210723
  5. VENETOCLAX. [Suspect]
     Active Substance: VENETOCLAX
     Dosage: DAY 5
     Route: 048
     Dates: start: 20210724, end: 20210809

REACTIONS (4)
  - Papule [Unknown]
  - Drug eruption [Unknown]
  - Erythema [Unknown]
  - Rash [Recovering/Resolving]

NARRATIVE: CASE EVENT DATE: 20210812
